FAERS Safety Report 14298957 (Version 1)
Quarter: 2017Q4

REPORT INFORMATION
  Report Type: Spontaneous
  Country: US (occurrence: US)
  Receive Date: 20171216
  Receipt Date: 20171216
  Transmission Date: 20180321
  Serious: Yes (Other)
  Sender: FDA-Public Use
  Company Number: None

PATIENT
  Age: 72 Year
  Sex: Female
  Weight: 51.3 kg

DRUGS (14)
  1. NATURE-THROID [Concomitant]
     Active Substance: THYROID, PORCINE
  2. LATANOPROST. [Concomitant]
     Active Substance: LATANOPROST
  3. NASOCORT [Concomitant]
     Active Substance: BUDESONIDE
  4. VORICONAZOLE 200 MG [Suspect]
     Active Substance: VORICONAZOLE
     Indication: ASPERGILLUS INFECTION
     Dosage: ?          QUANTITY:60 TABLET(S);?
     Route: 048
     Dates: start: 20170825, end: 20171112
  5. LISINOPRIL. [Concomitant]
     Active Substance: LISINOPRIL
  6. ALLERGY DROPS [Concomitant]
  7. SINGULAIR [Concomitant]
     Active Substance: MONTELUKAST SODIUM
  8. ADVIL [Concomitant]
     Active Substance: IBUPROFEN
  9. MULTIVITAMIN [Concomitant]
     Active Substance: VITAMINS
  10. BREO ELLIPTA [Concomitant]
     Active Substance: FLUTICASONE FUROATE\VILANTEROL TRIFENATATE
  11. IMDUR [Concomitant]
     Active Substance: ISOSORBIDE MONONITRATE
  12. VITAMIN D [Concomitant]
     Active Substance: CHOLECALCIFEROL
  13. ATENOLOL. [Concomitant]
     Active Substance: ATENOLOL
  14. ALBUTEROL. [Concomitant]
     Active Substance: ALBUTEROL

REACTIONS (3)
  - Night blindness [None]
  - Lung neoplasm malignant [None]
  - Renal failure [None]

NARRATIVE: CASE EVENT DATE: 20171112
